FAERS Safety Report 8189494-6 (Version None)
Quarter: 2012Q1

REPORT INFORMATION
  Report Type: 
  Country: None (occurrence: None)
  Receive Date: 20120307
  Receipt Date: 20120228
  Transmission Date: 20120608
  Serious: Yes (Hospitalization)
  Sender: FDA-Public Use
  Company Number: US-BAYER-2011-028609

PATIENT
  Age: 33 Year
  Sex: Female
  Weight: 90.703 kg

DRUGS (5)
  1. YAZ [Suspect]
     Indication: MENSTRUATION IRREGULAR
     Dosage: UNK, QD
     Route: 048
     Dates: start: 20080801, end: 20100607
  2. SERTRALINE HYDROCHLORIDE [Concomitant]
     Dosage: 100 ?G, UNK
     Route: 048
     Dates: start: 20100711
  3. DROSPIRENONE AND ETHINYL ESTRADIOL [Suspect]
     Indication: MENSTRUATION IRREGULAR
     Dosage: UNK
     Dates: start: 20100601, end: 20100901
  4. ZOLOFT [Concomitant]
     Indication: DEPRESSION
     Dosage: UNK
     Route: 048
     Dates: start: 20080101, end: 20100101
  5. NAPROXEN [Concomitant]
     Dosage: UNK UNK, QD
     Route: 048

REACTIONS (4)
  - INJURY [None]
  - PULMONARY EMBOLISM [None]
  - MENTAL DISORDER [None]
  - PULMONARY INFARCTION [None]
